FAERS Safety Report 21601839 (Version 1)
Quarter: 2022Q4

REPORT INFORMATION
  Report Type: Spontaneous
  Country: US (occurrence: US)
  Receive Date: 20221116
  Receipt Date: 20221116
  Transmission Date: 20230113
  Serious: No
  Sender: FDA-Public Use
  Company Number: US-BRISTOL-MYERS SQUIBB COMPANY-2022-137838

PATIENT
  Age: 42 Year
  Sex: Female
  Weight: 62 kg

DRUGS (1)
  1. ELIQUIS [Suspect]
     Active Substance: APIXABAN
     Indication: Deep vein thrombosis
     Route: 048
     Dates: start: 202210, end: 202211

REACTIONS (2)
  - Accidental overdose [Unknown]
  - Wrong product administered [Unknown]

NARRATIVE: CASE EVENT DATE: 20221001
